FAERS Safety Report 6587668-9 (Version None)
Quarter: 2010Q1

REPORT INFORMATION
  Report Type: 
  Country: None (occurrence: None)
  Receive Date: 20100217
  Receipt Date: 20100217
  Transmission Date: 20100710
  Serious: Yes (Other)
  Sender: FDA-Public Use
  Company Number: None

PATIENT
  Age: 52 Year
  Sex: Female
  Weight: 121.1104 kg

DRUGS (1)
  1. LAMOTRIGINE [Suspect]
     Indication: BIPOLAR DISORDER
     Dosage: 300 MG. DAILY PO
     Route: 048
     Dates: start: 20090601, end: 20100216

REACTIONS (2)
  - CEREBROVASCULAR ACCIDENT [None]
  - DYSGRAPHIA [None]
